FAERS Safety Report 7372125-2 (Version None)
Quarter: 2011Q1

REPORT INFORMATION
  Report Type: 
  Country: None (occurrence: None)
  Receive Date: 20110324
  Receipt Date: 20110314
  Transmission Date: 20110831
  Serious: Yes (Other)
  Sender: FDA-Public Use
  Company Number: IT-SANOFI-AVENTIS-2011SA015089

PATIENT
  Age: 60 Year
  Sex: Female

DRUGS (3)
  1. BLOPRESS [Concomitant]
     Indication: HYPERTENSION
     Route: 065
  2. CARDIOASPIRINA [Concomitant]
     Route: 065
  3. MULTAQ [Suspect]
     Indication: ATRIAL FIBRILLATION
     Route: 048
     Dates: start: 20100901

REACTIONS (3)
  - BRADYCARDIA [None]
  - ATRIAL FIBRILLATION [None]
  - ASTHENIA [None]
